FAERS Safety Report 9116627 (Version 1)
Quarter: 2013Q1

REPORT INFORMATION
  Report Type: Spontaneous
  Country: SE (occurrence: SE)
  Receive Date: 20130225
  Receipt Date: 20130225
  Transmission Date: 20140127
  Serious: Yes (Other)
  Sender: FDA-Public Use
  Company Number: SE-ROCHE-1194155

PATIENT
  Age: 66 Year
  Sex: Male

DRUGS (8)
  1. LARIAM [Suspect]
     Indication: PRODUCT USED FOR UNKNOWN INDICATION
     Route: 048
     Dates: start: 20121203, end: 20130207
  2. PAROXIL [Concomitant]
  3. LOSARTAN [Concomitant]
  4. POSTAFEN [Concomitant]
     Route: 065
  5. BEHEPAN [Concomitant]
     Route: 065
  6. SELOKEN [Concomitant]
  7. ALVEDON [Concomitant]
     Route: 065
  8. IMOVANE [Concomitant]

REACTIONS (4)
  - Decreased appetite [Unknown]
  - Weight increased [Unknown]
  - Nausea [Unknown]
  - Mental disorder [Unknown]
